FAERS Safety Report 9107200 (Version 1)
Quarter: 2013Q1

REPORT INFORMATION
  Report Type: Spontaneous
  Country: NZ (occurrence: NZ)
  Receive Date: 20130221
  Receipt Date: 20130221
  Transmission Date: 20140127
  Serious: Yes (Other)
  Sender: FDA-Public Use
  Company Number: NZ-BAYER-2013-019797

PATIENT
  Sex: Female

DRUGS (4)
  1. MIRENA [Suspect]
     Dosage: 20 MCG/24HR, CONT
     Route: 015
  2. MIRENA [Suspect]
     Dosage: 20 MCG/24HR, UNK
     Route: 015
  3. MIRENA [Suspect]
     Dosage: 20 MCG/24HR, UNK
     Route: 015
  4. JADELLE [Suspect]
     Dosage: UNK

REACTIONS (3)
  - Papilloedema [None]
  - Benign intracranial hypertension [None]
  - Device expulsion [Recovered/Resolved]
